FAERS Safety Report 24069917 (Version 1)
Quarter: 2024Q3

REPORT INFORMATION
  Report Type: Spontaneous
  Country: US (occurrence: US)
  Receive Date: 20240710
  Receipt Date: 20240710
  Transmission Date: 20241017
  Serious: No
  Sender: ROCHE
  Company Number: US-ROCHE-3500653

PATIENT
  Age: 68 Year
  Sex: Male
  Weight: 127.0 kg

DRUGS (8)
  1. VABYSMO [Suspect]
     Active Substance: FARICIMAB\FARICIMAB-SVOA
     Indication: Macular oedema
     Route: 050
     Dates: start: 20240117, end: 20240117
  2. VABYSMO [Suspect]
     Active Substance: FARICIMAB\FARICIMAB-SVOA
     Indication: Retinal vein occlusion
  3. AVASTIN [Suspect]
     Active Substance: BEVACIZUMAB
     Indication: Macular oedema
     Dosage: MOST RECENT DOSE 09/MAY/2024
     Route: 050
     Dates: start: 2004
  4. AVASTIN [Suspect]
     Active Substance: BEVACIZUMAB
     Indication: Retinal vein occlusion
  5. LISINOPRIL [Concomitant]
     Active Substance: LISINOPRIL
     Indication: Hypertension
     Route: 048
     Dates: start: 2023
  6. OZURDEX [Concomitant]
     Active Substance: DEXAMETHASONE
     Indication: Macular oedema
  7. OZURDEX [Concomitant]
     Active Substance: DEXAMETHASONE
     Indication: Retinal vein occlusion
  8. EYLEA [Concomitant]
     Active Substance: AFLIBERCEPT
     Route: 050
     Dates: start: 2023, end: 2023

REACTIONS (9)
  - Drug ineffective [Unknown]
  - Eye pain [Recovered/Resolved]
  - Visual impairment [Recovered/Resolved]
  - Eye infection [Recovered/Resolved]
  - Pain [Recovered/Resolved]
  - Intraocular pressure increased [Unknown]
  - Vitreous floaters [Recovered/Resolved]
  - Prostate cancer [Recovered/Resolved]
  - Off label use [Unknown]

NARRATIVE: CASE EVENT DATE: 20150101
